FAERS Safety Report 7411820-3 (Version None)
Quarter: 2011Q2

REPORT INFORMATION
  Report Type: 
  Country: None (occurrence: None)
  Receive Date: 20110413
  Receipt Date: 20110331
  Transmission Date: 20111010
  Serious: Yes (Other)
  Sender: FDA-Public Use
  Company Number: US-ELI_LILLY_AND_COMPANY-US201102000888

PATIENT
  Sex: Female

DRUGS (4)
  1. CALCIUM [Concomitant]
     Dosage: UNK, UNKNOWN
     Route: 065
  2. VITAMIN D [Concomitant]
     Dosage: UNK, UNKNOWN
     Route: 065
  3. FORTEO [Suspect]
     Dosage: 20 UG, DAILY (1/D)
     Route: 058
     Dates: start: 20110301
  4. FORTEO [Suspect]
     Indication: OSTEOPOROSIS
     Dosage: 20 UG, DAILY (1/D)
     Route: 058
     Dates: start: 20091103, end: 20110128

REACTIONS (3)
  - MUSCULAR WEAKNESS [None]
  - BLOOD CALCIUM INCREASED [None]
  - RHEUMATOID ARTHRITIS [None]
